FAERS Safety Report 5497963-2 (Version None)
Quarter: 2007Q4

REPORT INFORMATION
  Report Type: 
  Country: None (occurrence: None)
  Receive Date: 20071025
  Receipt Date: 20071018
  Transmission Date: 20080405
  Serious: Yes (Hospitalization, Other)
  Sender: FDA-Public Use
  Company Number: JP-PFIZER INC-2007088458

PATIENT
  Age: 71 Year
  Sex: Male

DRUGS (3)
  1. VIAGRA [Suspect]
     Indication: ERECTILE DYSFUNCTION
     Dosage: TEXT:2 TABLETS
     Route: 048
  2. GENERAL NUTRIENTS/MINERALS/VITAMINS [Interacting]
     Route: 048
  3. HERBAL PREPARATION [Interacting]
     Indication: BENIGN PROSTATIC HYPERPLASIA
     Route: 048

REACTIONS (2)
  - DRUG INTERACTION [None]
  - SHOCK [None]
